FAERS Safety Report 14272035 (Version 1)
Quarter: 2017Q4

REPORT INFORMATION
  Report Type: Report from Study
  Country: US (occurrence: US)
  Receive Date: 20171211
  Receipt Date: 20171211
  Transmission Date: 20180321
  Serious: Yes (Death)
  Sender: FDA-Public Use
  Company Number: US-ACTELION-A-US2017-161981

PATIENT
  Age: 82 Year
  Sex: Female
  Weight: 48.73 kg

DRUGS (6)
  1. COUMADIN [Concomitant]
     Active Substance: WARFARIN SODIUM
  2. UPTRAVI [Suspect]
     Active Substance: SELEXIPAG
     Indication: PULMONARY ARTERIAL HYPERTENSION
     Dosage: 200 MCG, BID
     Route: 048
  3. OPSUMIT [Suspect]
     Active Substance: MACITENTAN
     Indication: PULMONARY ARTERIAL HYPERTENSION
     Route: 048
  4. UPTRAVI [Suspect]
     Active Substance: SELEXIPAG
     Dosage: 400 UNK, UNK
     Route: 048
  5. SILDENAFIL CITRATE. [Concomitant]
     Active Substance: SILDENAFIL CITRATE
  6. AMLODIPINE [Concomitant]
     Active Substance: AMLODIPINE BESYLATE

REACTIONS (8)
  - Gait disturbance [Unknown]
  - Headache [Unknown]
  - Nausea [Unknown]
  - Insomnia [Unknown]
  - Fatigue [Unknown]
  - Death [Fatal]
  - Constipation [Unknown]
  - Diarrhoea [Recovering/Resolving]
